FAERS Safety Report 8305103-7 (Version None)
Quarter: 2012Q2

REPORT INFORMATION
  Report Type: 
  Country: None (occurrence: None)
  Receive Date: 20120423
  Receipt Date: 20120412
  Transmission Date: 20120825
  Serious: Yes (Hospitalization)
  Sender: FDA-Public Use
  Company Number: SE-ASTRAZENECA-2012SE24154

PATIENT
  Age: 91 Year
  Sex: Female

DRUGS (9)
  1. MADOPARK [Concomitant]
  2. ASPIRIN [Concomitant]
  3. ATENOLOL [Concomitant]
  4. ORALVITE [Concomitant]
  5. KALCIPOS [Concomitant]
  6. ALENDRONATE SODIUM [Concomitant]
  7. FELODIPINE [Suspect]
     Indication: ESSENTIAL HYPERTENSION
     Route: 065
     Dates: end: 20111124
  8. PREDNISOLONE [Concomitant]
  9. OMEPRAZOLE [Concomitant]

REACTIONS (1)
  - ORTHOSTATIC HYPOTENSION [None]
